FAERS Safety Report 6938929-2 (Version None)
Quarter: 2010Q3

REPORT INFORMATION
  Report Type: 
  Country: None (occurrence: None)
  Receive Date: 20100824
  Receipt Date: 20100816
  Transmission Date: 20110219
  Serious: Yes (Hospitalization)
  Sender: FDA-Public Use
  Company Number: B0671267A

PATIENT
  Sex: Female

DRUGS (4)
  1. LANOXIN [Suspect]
     Indication: ATRIAL FIBRILLATION
     Dosage: .12MG PER DAY
     Route: 048
     Dates: start: 20040101, end: 20100710
  2. ESOMEPRAZOLE MAGNESIUM [Concomitant]
     Dosage: 1UNIT PER DAY
     Route: 048
  3. TICLOPIDINE HCL [Concomitant]
     Route: 065
  4. DISODIUM CLODRONATE [Concomitant]
     Indication: OSTEOPOROSIS
     Dosage: 1UNIT PER DAY
     Route: 030

REACTIONS (2)
  - BRADYARRHYTHMIA [None]
  - MALAISE [None]
